FAERS Safety Report 5875411-8 (Version None)
Quarter: 2008Q3

REPORT INFORMATION
  Report Type: 
  Country: None (occurrence: None)
  Receive Date: 20080909
  Receipt Date: 20080903
  Transmission Date: 20090109
  Serious: Yes (Other)
  Sender: FDA-Public Use
  Company Number: US-JNJCH-2008022687

PATIENT
  Sex: Male

DRUGS (1)
  1. BENGAY PAIN RELIEVING PATCH [Suspect]
     Indication: PAIN
     Dosage: TEXT:ONCE
     Route: 061
     Dates: start: 20080815, end: 20080815

REACTIONS (2)
  - APPLICATION SITE BURN [None]
  - ERYTHEMA [None]
